FAERS Safety Report 4615530-7 (Version None)
Quarter: 2005Q1

REPORT INFORMATION
  Report Type: 
  Country: None (occurrence: None)
  Receive Date: 20050322
  Receipt Date: 20050315
  Transmission Date: 20050727
  Serious: Yes (Hospitalization)
  Sender: FDA-Public Use
  Company Number: DE-MERCK-0503DEU00144

PATIENT
  Age: 60 Year
  Sex: Male

DRUGS (3)
  1. FOSAMAX [Suspect]
     Indication: OSTEOPOROSIS
     Route: 048
     Dates: start: 20050101, end: 20050201
  2. FOSAMAX [Suspect]
     Route: 048
     Dates: start: 20050201, end: 20050201
  3. FOSAMAX [Suspect]
     Route: 048
     Dates: start: 20050101, end: 20050101

REACTIONS (1)
  - ANGINA PECTORIS [None]
